FAERS Safety Report 6710568-8 (Version None)
Quarter: 2010Q2

REPORT INFORMATION
  Report Type: 
  Country: None (occurrence: None)
  Receive Date: 20100504
  Receipt Date: 20100211
  Transmission Date: 20101027
  Serious: No
  Sender: FDA-Public Use
  Company Number: US-BAYER-201014509NA

PATIENT
  Age: 83 Year
  Sex: Male
  Weight: 83 kg

DRUGS (1)
  1. ULTRAVIST 300 [Suspect]
     Indication: AORTIC ANEURYSM
     Dosage: TOTAL DAILY DOSE: 124 ML  UNIT DOSE: 200 ML
     Route: 042
     Dates: start: 20100209, end: 20100209

REACTIONS (2)
  - SNEEZING [None]
  - URTICARIA [None]
